FAERS Safety Report 25583271 (Version 1)
Quarter: 2025Q3

REPORT INFORMATION
  Report Type: Spontaneous
  Country: US (occurrence: None)
  Receive Date: 20250721
  Receipt Date: 20250721
  Transmission Date: 20251021
  Serious: No
  Sender: AXSOME THERAPEUTICS, INC.
  Company Number: US-Axsome Therapeutics, Inc.-AXS202506-001048

PATIENT
  Sex: Female

DRUGS (3)
  1. SUNOSI [Suspect]
     Active Substance: SOLRIAMFETOL
     Indication: Product used for unknown indication
     Route: 065
     Dates: start: 20250306
  2. SUNOSI [Suspect]
     Active Substance: SOLRIAMFETOL
     Dosage: INCREASED TO 150 MG DAILY ABOUT 2 MONTHS AGO.
     Route: 065
  3. PROVIGIL [Concomitant]
     Active Substance: MODAFINIL
     Indication: Hypersomnia
     Route: 065

REACTIONS (3)
  - Feeling hot [Unknown]
  - Erythema [Unknown]
  - Urticaria [Unknown]
